FAERS Safety Report 22969431 (Version 2)
Quarter: 2023Q4

REPORT INFORMATION
  Report Type: Spontaneous
  Country: DE (occurrence: DE)
  Receive Date: 20230922
  Receipt Date: 20231018
  Transmission Date: 20240110
  Serious: Yes (Death, Other)
  Sender: FDA-Public Use
  Company Number: DE-KRKA-DE2023K05792STU

PATIENT
  Age: 73 Year
  Sex: Female
  Weight: 66 kg

DRUGS (8)
  1. LENALIDOMIDE [Suspect]
     Active Substance: LENALIDOMIDE
     Indication: Non-Hodgkin^s lymphoma
     Dosage: 25 MILLIGRAM, ONCE A DAY (25 MG, PER DAY ON CYCLE DAYS 1-21)
     Route: 065
     Dates: start: 20230323
  2. TAFASITAMAB [Suspect]
     Active Substance: TAFASITAMAB
     Indication: Non-Hodgkin^s lymphoma
     Dosage: 12 MILLIGRAM/KILOGRAM, ONCE A DAY (12 MG/KG, PER DAY ON CYCLE DAYS 1, 4, 8, 15, 22)
     Route: 065
     Dates: start: 20230323
  3. AMLODIPINE [Concomitant]
     Active Substance: AMLODIPINE BESYLATE
     Indication: Product used for unknown indication
     Dosage: UNK
     Route: 065
  4. CALCIUM CARBONATE\CHOLECALCIFEROL [Concomitant]
     Active Substance: CALCIUM CARBONATE\CHOLECALCIFEROL
     Indication: Product used for unknown indication
     Dosage: UNK
     Route: 065
  5. CHOLECALCIFEROL [Concomitant]
     Active Substance: CHOLECALCIFEROL
     Indication: Product used for unknown indication
     Dosage: UNK
     Route: 065
  6. MCP [Concomitant]
     Active Substance: METOCLOPRAMIDE HYDROCHLORIDE
     Indication: Product used for unknown indication
     Dosage: UNK
     Route: 065
  7. METOPROLOL [Concomitant]
     Active Substance: METOPROLOL
     Indication: Product used for unknown indication
     Dosage: UNK
     Route: 065
  8. PROPYLTHIOURACIL [Concomitant]
     Active Substance: PROPYLTHIOURACIL
     Indication: Product used for unknown indication
     Dosage: UNK
     Route: 065

REACTIONS (8)
  - Death [Fatal]
  - Neutropenia [Fatal]
  - Thrombocytopenia [Fatal]
  - Fatigue [Recovered/Resolved]
  - Nausea [Unknown]
  - Weight decreased [Unknown]
  - Muscle spasms [Recovered/Resolved]
  - Off label use [Recovered/Resolved]

NARRATIVE: CASE EVENT DATE: 20230405
